FAERS Safety Report 9381793 (Version 1)
Quarter: 2013Q3

REPORT INFORMATION
  Report Type: Report from Study
  Country: US (occurrence: US)
  Receive Date: 20130703
  Receipt Date: 20130703
  Transmission Date: 20140515
  Serious: Yes (Hospitalization)
  Sender: FDA-Public Use
  Company Number: PHHY2013US065276

PATIENT
  Age: 64 Year
  Sex: Male

DRUGS (9)
  1. EVEROLIMUS [Suspect]
     Indication: PANCREATIC NEUROENDOCRINE TUMOUR METASTATIC
     Dosage: 10 MG, QD
     Route: 048
     Dates: start: 20120326
  2. EVEROLIMUS [Suspect]
     Dosage: 10 MG, QD
     Route: 048
     Dates: start: 20120724
  3. OCTREOTIDE [Suspect]
     Indication: PANCREATIC NEUROENDOCRINE TUMOUR METASTATIC
     Dosage: 20 MG, DAILY
     Route: 030
     Dates: start: 20120326
  4. BEVACIZUMAB [Suspect]
     Indication: PANCREATIC NEUROENDOCRINE TUMOUR METASTATIC
     Dates: end: 20130305
  5. KENALOG [Suspect]
     Indication: SKIN LESION
     Dosage: 10 MG/ML
  6. ROSUVASTATIN [Concomitant]
     Indication: DIABETES MELLITUS
     Dosage: 20 MG, QD
     Route: 048
  7. METFORMIN HYDROCHLORIDE [Concomitant]
     Indication: DIABETES MELLITUS
     Dosage: 1000 MG, BID
     Route: 048
  8. CEPHALEXIN [Concomitant]
     Dosage: 500 MG, BID
  9. GLICLAZIDE [Concomitant]
     Indication: DIABETES MELLITUS
     Dosage: 30 MG, QD
     Route: 048

REACTIONS (5)
  - Skin infection [Unknown]
  - Skin lesion [Unknown]
  - Swelling [Unknown]
  - Erythema [Unknown]
  - Dermatitis [Unknown]
